FAERS Safety Report 14260176 (Version 5)
Quarter: 2018Q2

REPORT INFORMATION
  Report Type: Report from Study
  Country: US (occurrence: US)
  Receive Date: 20171207
  Receipt Date: 20180614
  Transmission Date: 20180711
  Serious: Yes (Death, Hospitalization)
  Sender: FDA-Public Use
  Company Number: US-PFIZER INC-2017522912

PATIENT
  Age: 46 Year
  Sex: Female
  Weight: 37 kg

DRUGS (16)
  1. INCB018424 [Suspect]
     Active Substance: RUXOLITINIB
     Dosage: 5 MG, QD
     Route: 048
     Dates: start: 20170827, end: 20170917
  2. PREDNISONE. [Concomitant]
     Active Substance: PREDNISONE
     Dosage: 30 MG, Q24H
     Route: 048
     Dates: start: 20170914
  3. METHYLPREDNISOLONE SODIUM SUCCINATE. [Suspect]
     Active Substance: METHYLPREDNISOLONE SODIUM SUCCINATE
     Dosage: 22 MG, Q24H
     Route: 042
     Dates: start: 20171015, end: 20171109
  4. PREDNISONE. [Concomitant]
     Active Substance: PREDNISONE
     Indication: ACUTE GRAFT VERSUS HOST DISEASE
     Dosage: 25 MG, Q24H
     Route: 048
     Dates: start: 20170816
  5. ALPHA-1-ANTITRYPSIN [Concomitant]
     Active Substance: .ALPHA.1-PROTEINASE INHIBITOR HUMAN
     Indication: GRAFT VERSUS HOST DISEASE
     Dosage: 4500 MG, Q48H
     Dates: start: 20171028, end: 20171028
  6. METHYLPREDNISOLONE SODIUM SUCCINATE. [Suspect]
     Active Substance: METHYLPREDNISOLONE SODIUM SUCCINATE
     Dosage: 28 MG, QD
     Route: 042
     Dates: start: 20170927, end: 20170929
  7. TACROLIMUS. [Suspect]
     Active Substance: TACROLIMUS
     Dosage: UNK
     Dates: end: 20170918
  8. INCB018424 [Suspect]
     Active Substance: RUXOLITINIB
     Dosage: 5 MG, BID
     Route: 048
     Dates: start: 20170802, end: 20170827
  9. INCB018424 [Suspect]
     Active Substance: RUXOLITINIB
     Dosage: 5 MG, QD
     Route: 048
     Dates: start: 20170917, end: 20171010
  10. MYCOPHENOLATE MOFETIL. [Suspect]
     Active Substance: MYCOPHENOLATE MOFETIL
     Dosage: UNK
  11. METHYLPREDNISOLONE SODIUM SUCCINATE. [Suspect]
     Active Substance: METHYLPREDNISOLONE SODIUM SUCCINATE
     Indication: ACUTE GRAFT VERSUS HOST DISEASE
     Dosage: 32 MG, QD
     Route: 042
     Dates: start: 20170919, end: 20170926
  12. PREDNISONE. [Concomitant]
     Active Substance: PREDNISONE
     Dosage: UNK
     Dates: start: 20170816, end: 20171012
  13. INCB018424 [Suspect]
     Active Substance: RUXOLITINIB
     Dosage: 10 MG, BID
     Route: 048
     Dates: start: 20170619, end: 20170802
  14. METHYLPREDNISOLONE SODIUM SUCCINATE. [Suspect]
     Active Substance: METHYLPREDNISOLONE SODIUM SUCCINATE
     Dosage: 24 MG, Q24H
     Route: 042
     Dates: start: 20171012, end: 20171014
  15. SIROLIMUS. [Suspect]
     Active Substance: SIROLIMUS
     Dosage: UNK
  16. INCB018424 [Suspect]
     Active Substance: RUXOLITINIB
     Indication: GRAFT VERSUS HOST DISEASE
     Dosage: 5 MG, BID
     Route: 048
     Dates: start: 20170615, end: 20170619

REACTIONS (3)
  - Anaemia [Recovered/Resolved]
  - Respiratory failure [Fatal]
  - Thrombocytopenia [Recovered/Resolved]

NARRATIVE: CASE EVENT DATE: 20170917
